FAERS Safety Report 7775327-6 (Version None)
Quarter: 2011Q3

REPORT INFORMATION
  Report Type: 
  Country: None (occurrence: None)
  Receive Date: 20110921
  Receipt Date: 20110909
  Transmission Date: 20111222
  Serious: Yes (Hospitalization)
  Sender: FDA-Public Use
  Company Number: B0748085A

PATIENT
  Age: 77 Year
  Sex: Male

DRUGS (4)
  1. ANESTHETIC [Concomitant]
  2. OXYGEN [Concomitant]
  3. NITROUS OXIDE [Concomitant]
  4. CEFUROXIME SODIUM [Suspect]
     Indication: ANTIBIOTIC PROPHYLAXIS

REACTIONS (5)
  - CARDIAC ARREST [None]
  - PNEUMOTHORAX [None]
  - BLOOD PH DECREASED [None]
  - ATELECTASIS [None]
  - ANAPHYLACTIC REACTION [None]
